FAERS Safety Report 9152654 (Version 1)
Quarter: 2013Q1

REPORT INFORMATION
  Report Type: Spontaneous
  Country: US (occurrence: US)
  Receive Date: 20130308
  Receipt Date: 20130308
  Transmission Date: 20140127
  Serious: No
  Sender: FDA-Public Use
  Company Number: US-BAYER-2013-029872

PATIENT
  Age: 31 Year
  Sex: Female

DRUGS (2)
  1. MAGNEVIST [Suspect]
     Dosage: 26ML FROM 2 15ML VIALS
     Route: 042
     Dates: start: 20130306, end: 20130306
  2. MAGNEVIST [Suspect]
     Dosage: 26ML FROM 2 15ML VIALS
     Route: 042
     Dates: start: 20130306, end: 20130306

REACTIONS (3)
  - Nausea [Recovered/Resolved]
  - Retching [Recovered/Resolved]
  - Vomiting [Recovered/Resolved]
